FAERS Safety Report 7674697-7 (Version None)
Quarter: 2011Q3

REPORT INFORMATION
  Report Type: 
  Country: None (occurrence: None)
  Receive Date: 20110810
  Receipt Date: 20110801
  Transmission Date: 20111222
  Serious: Yes (Hospitalization, Disabling)
  Sender: FDA-Public Use
  Company Number: US-GLAXOSMITHKLINE-A0882100A

PATIENT
  Age: 34 Year
  Sex: Male

DRUGS (9)
  1. LEXAPRO [Concomitant]
  2. LAMICTAL [Suspect]
     Indication: AFFECTIVE DISORDER
     Route: 048
     Dates: start: 20080821, end: 20080926
  3. ALBUTEROL SULFATE AUTOHALER [Concomitant]
  4. ACYCLOVIR [Concomitant]
  5. FLONASE [Concomitant]
  6. ALPRAZOLAM [Concomitant]
  7. RISPERDAL [Concomitant]
     Dates: start: 20080901
  8. ZANTAC [Concomitant]
  9. LORATADINE [Concomitant]

REACTIONS (4)
  - SKIN REACTION [None]
  - ULNAR NERVE PALSY [None]
  - STEVENS-JOHNSON SYNDROME [None]
  - TOXIC EPIDERMAL NECROLYSIS [None]
